FAERS Safety Report 16668700 (Version 1)
Quarter: 2019Q3

REPORT INFORMATION
  Report Type: Spontaneous
  Country: US (occurrence: US)
  Receive Date: 20190804
  Receipt Date: 20190804
  Transmission Date: 20191004
  Serious: Yes (Life-Threatening, Other)
  Sender: FDA-Public Use
  Company Number: None

PATIENT
  Age: 66 Year
  Sex: Male
  Weight: 103.5 kg

DRUGS (4)
  1. ELIQUIS [Concomitant]
     Active Substance: APIXABAN
  2. DULOXETINE. [Suspect]
     Active Substance: DULOXETINE
     Indication: DEPRESSION
     Dates: start: 20190213, end: 20190728
  3. RASUVASTATIN [Concomitant]
     Active Substance: ROSUVASTATIN
  4. OLMASARTAN [Concomitant]

REACTIONS (7)
  - Suicidal ideation [None]
  - Anxiety [None]
  - Muscle twitching [None]
  - Anger [None]
  - Depression [None]
  - Therapy cessation [None]
  - Therapy change [None]

NARRATIVE: CASE EVENT DATE: 20190728
